FAERS Safety Report 8776079 (Version 2)
Quarter: 2012Q4

REPORT INFORMATION
  Report Type: 
  Country: US (occurrence: US)
  Receive Date: 20120910
  Receipt Date: 20120926
  Transmission Date: 20130627
  Serious: No
  Sender: FDA-Public Use
  Company Number: US-PFIZER INC-2012221414

PATIENT
  Age: 68 Year
  Sex: Female
  Weight: 77.1 kg

DRUGS (6)
  1. LYRICA [Suspect]
     Indication: NEURALGIA
     Dosage: 50 mg, 3x/day
     Route: 048
  2. LYRICA [Suspect]
     Indication: FIBROMYALGIA
  3. GABAPENTIN [Suspect]
     Indication: NEURALGIA
     Dosage: 400mg in the morning and 800mg in evening
     Route: 048
  4. GABAPENTIN [Suspect]
     Dosage: UNK, 2x/day
     Route: 048
  5. HYDROCODONE [Concomitant]
     Indication: PAIN
     Dosage: UNK
  6. TRAMADOL [Concomitant]
     Indication: PAIN
     Dosage: UNK

REACTIONS (6)
  - Arthritis [Not Recovered/Not Resolved]
  - Drug ineffective [Unknown]
  - Pain [Not Recovered/Not Resolved]
  - Somnolence [Unknown]
  - Mood swings [Unknown]
  - Depression [Unknown]
